FAERS Safety Report 25415961 (Version 1)
Quarter: 2025Q2

REPORT INFORMATION
  Report Type: Spontaneous
  Country: IT (occurrence: IT)
  Receive Date: 20250610
  Receipt Date: 20250610
  Transmission Date: 20250717
  Serious: Yes (Death, Other)
  Sender: CHEPLAPHARM
  Company Number: IT-CHEPLA-2025006945

PATIENT
  Age: 58 Year
  Sex: Male

DRUGS (4)
  1. CLONAZEPAM [Suspect]
     Active Substance: CLONAZEPAM
  2. CITALOPRAM [Suspect]
     Active Substance: CITALOPRAM
  3. METHYLENEDIOXYPYRROLIDINOHEXIOPHENONE [Suspect]
     Active Substance: METHYLENEDIOXYPYRROLIDINOHEXIOPHENONE
  4. METHYLENEDIOXYPYROVALERONE [Suspect]
     Active Substance: METHYLENEDIOXYPYROVALERONE

REACTIONS (4)
  - Toxicity to various agents [Fatal]
  - Pulmonary congestion [Unknown]
  - Ventricular hypertrophy [Unknown]
  - Cerebral congestion [Unknown]
